FAERS Safety Report 7277260-5 (Version None)
Quarter: 2011Q1

REPORT INFORMATION
  Report Type: 
  Country: None (occurrence: None)
  Receive Date: 20110202
  Receipt Date: 20110202
  Transmission Date: 20110831
  Serious: Yes (Other)
  Sender: FDA-Public Use
  Company Number: None

PATIENT
  Sex: Female
  Weight: 63.9572 kg

DRUGS (1)
  1. EVISTA [Suspect]
     Dosage: 60

REACTIONS (2)
  - DRY EYE [None]
  - CYSTITIS INTERSTITIAL [None]
